FAERS Safety Report 24084106 (Version 1)
Quarter: 2024Q3

REPORT INFORMATION
  Report Type: Spontaneous
  Country: None (occurrence: None)
  Receive Date: 20240712
  Receipt Date: 20240712
  Transmission Date: 20241016
  Serious: No
  Sender: MARINUS PHARMACEUTICALS
  Company Number: -MARINUS PHARMACEUTICALS, INC.-MAR2024000129

PATIENT

DRUGS (2)
  1. ZTALMY [Suspect]
     Active Substance: GANAXOLONE
     Indication: Product used for unknown indication
     Dosage: 12 MILLILITER SUSPENSION
     Route: 048
  2. ZTALMY [Suspect]
     Active Substance: GANAXOLONE
     Dosage: 6 MILLILITER SUSPENSION
     Route: 048

REACTIONS (1)
  - Agitation [Unknown]
